FAERS Safety Report 6757738-0 (Version None)
Quarter: 2010Q2

REPORT INFORMATION
  Report Type: 
  Country: None (occurrence: None)
  Receive Date: 20100607
  Receipt Date: 20100528
  Transmission Date: 20101027
  Serious: Yes (Disabling, Other)
  Sender: FDA-Public Use
  Company Number: CA-SANOFI-AVENTIS-2010SA004987

PATIENT
  Sex: Female

DRUGS (2)
  1. ARAVA [Suspect]
     Indication: RHEUMATOID ARTHRITIS
     Route: 048
     Dates: start: 20060701, end: 20080331
  2. SULFASALAZINE [Suspect]
     Indication: ANTIINFLAMMATORY THERAPY
     Route: 048
     Dates: start: 20080420, end: 20080420

REACTIONS (10)
  - AGEUSIA [None]
  - ALOPECIA [None]
  - DYSKINESIA [None]
  - GLAUCOMA [None]
  - MOUTH ULCERATION [None]
  - PNEUMONIA [None]
  - SKIN EXFOLIATION [None]
  - TEETH BRITTLE [None]
  - VISION BLURRED [None]
  - WEIGHT DECREASED [None]
